FAERS Safety Report 10909326 (Version 1)
Quarter: 2015Q1

REPORT INFORMATION
  Report Type: Spontaneous
  Country: US (occurrence: US)
  Receive Date: 20150312
  Receipt Date: 20150312
  Transmission Date: 20150721
  Serious: No
  Sender: FDA-Public Use
  Company Number: US-SA-2014SA040020

PATIENT
  Age: 90 Year
  Sex: Female

DRUGS (1)
  1. NASACORT ALLERGY 24HR [Suspect]
     Active Substance: TRIAMCINOLONE ACETONIDE
     Dosage: 2 SPRAYS EACH NOSTRIL AND FOR THE NEXT 2 DAYS?SHE ONLY TOOK 1 SPRAY

REACTIONS (1)
  - Insomnia [Not Recovered/Not Resolved]
